FAERS Safety Report 6024554-7 (Version None)
Quarter: 2008Q4

REPORT INFORMATION
  Report Type: 
  Country: None (occurrence: None)
  Receive Date: 20081231
  Receipt Date: 20081021
  Transmission Date: 20090506
  Serious: Yes (Other)
  Sender: FDA-Public Use
  Company Number: US-BRISTOL-MYERS SQUIBB COMPANY-14377683

PATIENT
  Age: 5 Decade
  Sex: Female

DRUGS (7)
  1. ORENCIA [Suspect]
     Indication: RHEUMATOID ARTHRITIS
     Dates: start: 20080101, end: 20081010
  2. AMITRIPTYLINE [Concomitant]
  3. PLAQUENIL [Concomitant]
  4. ARAVA [Concomitant]
  5. METHOTREXATE [Concomitant]
  6. NAPROXEN [Concomitant]
  7. VITAMIN D [Concomitant]

REACTIONS (1)
  - ENDOMETRIAL CANCER [None]
